FAERS Safety Report 25829256 (Version 1)
Quarter: 2025Q3

REPORT INFORMATION
  Report Type: Spontaneous
  Country: GB (occurrence: GB)
  Receive Date: 20250922
  Receipt Date: 20250922
  Transmission Date: 20251021
  Serious: Yes (Hospitalization, Other)
  Sender: AUROBINDO
  Company Number: GB-MHRA-MED-202509101100572160-QCRNL

PATIENT
  Age: 50 Year
  Sex: Female

DRUGS (6)
  1. METFORMIN [Suspect]
     Active Substance: METFORMIN HYDROCHLORIDE
     Indication: Diabetes mellitus
     Dosage: 500MG TWICE DAILY FOR 5 DAYS OF THE WEEK
     Route: 065
  2. VENLAFAXINE [Suspect]
     Active Substance: VENLAFAXINE HYDROCHLORIDE
     Indication: Product used for unknown indication
     Dosage: 75MG MODIFIED RELEASE ONCE A DAY
     Route: 065
  3. OZEMPIC [Suspect]
     Active Substance: SEMAGLUTIDE
     Indication: Product used for unknown indication
     Dosage: 1MG WEEKLY
     Route: 065
     Dates: start: 20250901
  4. MOUNJARO [Suspect]
     Active Substance: TIRZEPATIDE
     Indication: Product used for unknown indication
     Dosage: 5 MILLIGRAM, EVERY WEEK
     Route: 065
     Dates: start: 20250820, end: 20250908
  5. LEVOTHYROXINE [Suspect]
     Active Substance: LEVOTHYROXINE
     Indication: Product used for unknown indication
     Route: 065
  6. DESOGESTREL [Suspect]
     Active Substance: DESOGESTREL
     Indication: Product used for unknown indication
     Route: 065

REACTIONS (4)
  - Sensory loss [Recovering/Resolving]
  - Paraesthesia [Recovering/Resolving]
  - Hypoaesthesia [Recovering/Resolving]
  - Asthenia [Recovering/Resolving]

NARRATIVE: CASE EVENT DATE: 20250901
